FAERS Safety Report 11939492 (Version 1)
Quarter: 2016Q1

REPORT INFORMATION
  Report Type: Report from Study
  Country: CO (occurrence: CO)
  Receive Date: 20160122
  Receipt Date: 20160122
  Transmission Date: 20160526
  Serious: Yes (Death)
  Sender: FDA-Public Use
  Company Number: CO-ABBVIE-16P-036-1543859-00

PATIENT
  Age: 81 Year
  Sex: Female
  Weight: 50 kg

DRUGS (1)
  1. ZEMPLAR [Suspect]
     Active Substance: PARICALCITOL
     Indication: HYPERPARATHYROIDISM SECONDARY
     Route: 048
     Dates: start: 20130620, end: 20151031

REACTIONS (5)
  - Abdominal pain [Fatal]
  - Abdominal sepsis [Fatal]
  - Cardiac arrest [Fatal]
  - Intestinal obstruction [Fatal]
  - Peritonitis bacterial [Fatal]

NARRATIVE: CASE EVENT DATE: 20151214
